FAERS Safety Report 11828928 (Version 1)
Quarter: 2015Q4

REPORT INFORMATION
  Report Type: Report from Study
  Country: CA (occurrence: CA)
  Receive Date: 20151211
  Receipt Date: 20151211
  Transmission Date: 20160305
  Serious: Yes (Other)
  Sender: FDA-Public Use
  Company Number: CA-BRISTOL-MYERS SQUIBB COMPANY-BMS-2014-003914

PATIENT
  Sex: Female

DRUGS (1)
  1. ABATACEPT [Suspect]
     Active Substance: ABATACEPT
     Indication: RHEUMATOID ARTHRITIS
     Dosage: 750 MG, Q4WK
     Route: 042
     Dates: start: 20090916

REACTIONS (6)
  - Poor quality sleep [Unknown]
  - Arthralgia [Recovering/Resolving]
  - Cardiac pacemaker insertion [Unknown]
  - Hypotension [Unknown]
  - Joint swelling [Recovering/Resolving]
  - Epistaxis [Unknown]
